FAERS Safety Report 6756241-1 (Version None)
Quarter: 2010Q2

REPORT INFORMATION
  Report Type: 
  Country: None (occurrence: None)
  Receive Date: 20100604
  Receipt Date: 20100526
  Transmission Date: 20101027
  Serious: Yes (Other)
  Sender: FDA-Public Use
  Company Number: CZ-WYE-H15411010

PATIENT
  Age: 68 Year
  Sex: Male

DRUGS (2)
  1. TAZOCIN [Suspect]
     Indication: INFECTION
     Route: 042
  2. AMIKACIN [Concomitant]

REACTIONS (4)
  - ABDOMINAL ABSCESS [None]
  - DRUG INEFFECTIVE [None]
  - KLEBSIELLA INFECTION [None]
  - PROTEUS INFECTION [None]
